FAERS Safety Report 23470023 (Version 2)
Quarter: 2024Q1

REPORT INFORMATION
  Report Type: Spontaneous
  Country: US (occurrence: US)
  Receive Date: 20240202
  Receipt Date: 20240219
  Transmission Date: 20240410
  Serious: Yes (Other)
  Sender: FDA-Public Use
  Company Number: US-MLMSERVICE-20240119-4786858-1

PATIENT

DRUGS (8)
  1. ZONISAMIDE [Suspect]
     Active Substance: ZONISAMIDE
     Indication: Epilepsy
     Dosage: UNK, (HIGH-DOSE)
     Dates: end: 2021
  2. ZONISAMIDE [Suspect]
     Active Substance: ZONISAMIDE
     Dosage: UNK (WEANING OFF)
  3. LACOSAMIDE [Suspect]
     Active Substance: LACOSAMIDE
     Indication: Epilepsy
     Dosage: UNK, (HIGH-DOSE)
     Dates: end: 2021
  4. TOPIRAMATE [Suspect]
     Active Substance: TOPIRAMATE
     Indication: Epilepsy
     Dosage: UNK, (HIGH-DOSE)
  5. FELBAMATE [Suspect]
     Active Substance: FELBAMATE
     Indication: Epilepsy
     Dosage: 1500 MG, TID (HIGH-DOSE (62?MG/KG/DAY)
  6. FELBAMATE [Suspect]
     Active Substance: FELBAMATE
     Dosage: UNK, (HIGH DOSE)
  7. RUFINAMIDE [Suspect]
     Active Substance: RUFINAMIDE
     Indication: Epilepsy
     Dosage: UNK, (HIGH-DOSE)
  8. RUFINAMIDE [Suspect]
     Active Substance: RUFINAMIDE
     Dosage: UNK (TITRATING UP)
     Dates: end: 2021

REACTIONS (1)
  - Nephrolithiasis [Recovered/Resolved]
